FAERS Safety Report 18936875 (Version 1)
Quarter: 2021Q1

REPORT INFORMATION
  Report Type: Report from Study
  Country: DE (occurrence: DE)
  Receive Date: 20210225
  Receipt Date: 20210225
  Transmission Date: 20210420
  Serious: Yes (Death, Other)
  Sender: FDA-Public Use
  Company Number: DE-AMGEN-DEUNI2021029400

PATIENT
  Age: 54 Year
  Sex: Male

DRUGS (3)
  1. METEX [METHOTREXATE SODIUM] [Suspect]
     Active Substance: METHOTREXATE SODIUM
     Indication: PSORIATIC ARTHROPATHY
     Dosage: 20 MG
     Route: 065
     Dates: start: 201106, end: 201206
  2. ETANERCEPT [Suspect]
     Active Substance: ETANERCEPT
     Indication: PSORIATIC ARTHROPATHY
     Dosage: 50 MG
     Route: 065
     Dates: start: 20131015, end: 201406
  3. METEX [METHOTREXATE SODIUM] [Suspect]
     Active Substance: METHOTREXATE SODIUM
     Dosage: 25 MG, WEEKLY (10 MG WEDNESDAYS, 15 MG SUNDAYS)
     Route: 065
     Dates: start: 201206, end: 201406

REACTIONS (1)
  - Death [Unknown]

NARRATIVE: CASE EVENT DATE: 20141031
